FAERS Safety Report 16824186 (Version 2)
Quarter: 2019Q3

REPORT INFORMATION
  Report Type: Report from Study
  Country: FR (occurrence: FR)
  Receive Date: 20190918
  Receipt Date: 20190920
  Transmission Date: 20191005
  Serious: Yes (Other)
  Sender: FDA-Public Use
  Company Number: PHHY2019FR214299

PATIENT
  Age: 44 Year
  Weight: 66 kg

DRUGS (20)
  1. ADOPORT [Suspect]
     Active Substance: TACROLIMUS
     Dosage: 7 MG, UNK
     Route: 048
     Dates: start: 20190626, end: 20190629
  2. ADOPORT [Suspect]
     Active Substance: TACROLIMUS
     Dosage: 16 MG, UNK
     Route: 048
     Dates: start: 20190708, end: 20190712
  3. ADOPORT [Suspect]
     Active Substance: TACROLIMUS
     Dosage: 0 MG, UNK
     Route: 048
     Dates: start: 20190826
  4. BACTRIM [Concomitant]
     Active Substance: SULFAMETHOXAZOLE\TRIMETHOPRIM
     Indication: PRODUCT USED FOR UNKNOWN INDICATION
     Dosage: UNK
     Route: 065
     Dates: start: 20190628
  5. MYFORTIC [Concomitant]
     Active Substance: MYCOPHENOLATE SODIUM
     Indication: PRODUCT USED FOR UNKNOWN INDICATION
     Dosage: UNK
     Route: 065
     Dates: start: 20190625
  6. ADOPORT [Suspect]
     Active Substance: TACROLIMUS
     Dosage: 19 MG, UNK
     Route: 048
     Dates: start: 20190717, end: 20190723
  7. EVEROLIMUS. [Concomitant]
     Active Substance: EVEROLIMUS
     Indication: PRODUCT USED FOR UNKNOWN INDICATION
     Dosage: 1.5 MG, UNK
     Route: 065
     Dates: start: 20190809, end: 20190820
  8. KAYEXALATE [Concomitant]
     Active Substance: SODIUM POLYSTYRENE SULFONATE
     Indication: PRODUCT USED FOR UNKNOWN INDICATION
     Dosage: UNK
     Route: 065
     Dates: start: 20190625
  9. ADOPORT [Suspect]
     Active Substance: TACROLIMUS
     Dosage: 10 MG, UNK
     Route: 048
     Dates: start: 20190813, end: 20190826
  10. LANSOPRAZOLE. [Concomitant]
     Active Substance: LANSOPRAZOLE
     Indication: PRODUCT USED FOR UNKNOWN INDICATION
     Dosage: UNK
     Route: 065
     Dates: start: 20190628
  11. ADOPORT [Suspect]
     Active Substance: TACROLIMUS
     Dosage: 15 MG, UNK
     Route: 048
     Dates: start: 20190809, end: 20190813
  12. ROVALCYTE [Concomitant]
     Active Substance: VALGANCICLOVIR HYDROCHLORIDE
     Indication: PRODUCT USED FOR UNKNOWN INDICATION
     Dosage: UNK
     Route: 065
     Dates: start: 20190628
  13. ADOPORT [Suspect]
     Active Substance: TACROLIMUS
     Indication: RENAL TRANSPLANT
     Dosage: 3.5 MG, UNK
     Route: 048
     Dates: start: 20190625, end: 20190626
  14. ADOPORT [Suspect]
     Active Substance: TACROLIMUS
     Dosage: 10 MG, UNK
     Route: 048
     Dates: start: 20190629, end: 20190702
  15. ADOPORT [Suspect]
     Active Substance: TACROLIMUS
     Dosage: 18 MG, UNK
     Route: 048
     Dates: start: 20190712, end: 20190717
  16. EVEROLIMUS. [Concomitant]
     Active Substance: EVEROLIMUS
     Dosage: 4 MG, UNK
     Route: 065
     Dates: start: 20190820, end: 20190826
  17. EVEROLIMUS. [Concomitant]
     Active Substance: EVEROLIMUS
     Dosage: 4.5 MG, UNK
     Route: 065
     Dates: start: 20190826
  18. ADOPORT [Suspect]
     Active Substance: TACROLIMUS
     Dosage: 20 MG, UNK
     Route: 048
     Dates: start: 20190702, end: 20190708
  19. ADOPORT [Suspect]
     Active Substance: TACROLIMUS
     Dosage: 20 MG, UNK
     Route: 048
     Dates: start: 20190723, end: 20190809
  20. BISOPROLOL [Concomitant]
     Active Substance: BISOPROLOL
     Indication: PRODUCT USED FOR UNKNOWN INDICATION
     Dosage: UNK
     Route: 065
     Dates: start: 20190625

REACTIONS (2)
  - Renal failure [Not Recovered/Not Resolved]
  - Tremor [Not Recovered/Not Resolved]

NARRATIVE: CASE EVENT DATE: 20190714
